FAERS Safety Report 5327919-1 (Version None)
Quarter: 2007Q2

REPORT INFORMATION
  Report Type: 
  Country: None (occurrence: None)
  Receive Date: 20070517
  Receipt Date: 20070509
  Transmission Date: 20071010
  Serious: Yes (Hospitalization)
  Sender: FDA-Public Use
  Company Number: ES-BOEHRINGER INGELHEIM PHARMACEUTICALS, INC.-2007-DE-02929BY

PATIENT
  Age: 85 Year
  Sex: Female

DRUGS (4)
  1. PRITOR PLUS [Suspect]
     Indication: ESSENTIAL HYPERTENSION
     Route: 048
  2. DIANBEN [Concomitant]
     Indication: DIABETES MELLITUS
     Route: 048
     Dates: start: 20070101, end: 20070213
  3. EUGLUCON [Concomitant]
     Indication: DIABETES MELLITUS
     Route: 048
  4. PANTOK [Concomitant]
     Indication: HYPERLIPIDAEMIA
     Route: 048

REACTIONS (1)
  - DEHYDRATION [None]
